FAERS Safety Report 6489545-0 (Version None)
Quarter: 2009Q4

REPORT INFORMATION
  Report Type: 
  Country: None (occurrence: None)
  Receive Date: 20091210
  Receipt Date: 20091001
  Transmission Date: 20100525
  Serious: No
  Sender: FDA-Public Use
  Company Number: US-AMGEN-KDL367281

PATIENT
  Sex: Female

DRUGS (2)
  1. ENBREL [Suspect]
     Indication: RHEUMATOID ARTHRITIS
     Route: 058
     Dates: start: 20090916
  2. METHOTREXATE [Concomitant]
     Route: 048

REACTIONS (4)
  - ERYTHEMA [None]
  - INJECTION SITE PAIN [None]
  - LOCAL SWELLING [None]
  - PURULENT DISCHARGE [None]
